FAERS Safety Report 12546615 (Version 2)
Quarter: 2016Q3

REPORT INFORMATION
  Report Type: Spontaneous
  Country: FR (occurrence: FR)
  Receive Date: 20160711
  Receipt Date: 20160714
  Transmission Date: 20161109
  Serious: Yes (Hospitalization)
  Sender: FDA-Public Use
  Company Number: FR-PFIZER INC-2016330006

PATIENT
  Age: 75 Year
  Sex: Male

DRUGS (9)
  1. TAHOR [Suspect]
     Active Substance: ATORVASTATIN CALCIUM
     Dosage: 20 MG, 1X/DAY
     Route: 048
     Dates: start: 20160126, end: 20160228
  2. PREVISCAN [Concomitant]
     Active Substance: FLUINDIONE
     Dosage: UNK
     Dates: start: 201311
  3. CORDARONE [Suspect]
     Active Substance: AMIODARONE HYDROCHLORIDE
     Indication: ATRIAL FLUTTER
     Dosage: UNK
     Route: 048
     Dates: start: 201412, end: 201511
  4. FUROSEMIDE. [Concomitant]
     Active Substance: FUROSEMIDE
     Dosage: UNK
     Dates: start: 201311
  5. CORDARONE [Suspect]
     Active Substance: AMIODARONE HYDROCHLORIDE
     Dosage: 200 MG, 2X/DAY
     Route: 048
     Dates: start: 20160126, end: 20160222
  6. TAHOR [Suspect]
     Active Substance: ATORVASTATIN CALCIUM
     Indication: DYSLIPIDAEMIA
     Dosage: UNK
     Route: 048
     Dates: start: 201508, end: 201511
  7. COVERSYL [Suspect]
     Active Substance: PERINDOPRIL
     Indication: HYPERTENSION
     Dosage: 8 MG, 1X/DAY
     Route: 048
     Dates: start: 201311, end: 20160222
  8. BISOPROLOL [Concomitant]
     Active Substance: BISOPROLOL
     Dosage: UNK
     Dates: start: 201311
  9. XATRAL [Concomitant]
     Active Substance: ALFUZOSIN
     Dosage: UNK
     Dates: start: 201311

REACTIONS (1)
  - Organising pneumonia [Recovering/Resolving]

NARRATIVE: CASE EVENT DATE: 201602
